FAERS Safety Report 9461494 (Version 1)
Quarter: 2013Q3

REPORT INFORMATION
  Report Type: Spontaneous
  Country: US (occurrence: None)
  Receive Date: 20130814
  Receipt Date: 20130814
  Transmission Date: 20140515
  Serious: Yes (Other)
  Sender: FDA-Public Use
  Company Number: None

PATIENT
  Age: 30 Year
  Sex: Female
  Weight: 68.04 kg

DRUGS (9)
  1. VIIBRYD 20ML FOREST LABORATORIES, INC. [Suspect]
     Indication: DEPRESSION
     Route: 048
     Dates: start: 20130523, end: 20130802
  2. PRISTIQ [Concomitant]
  3. WELLBUTRIN [Concomitant]
  4. AMBIEN [Concomitant]
  5. ATIVAN [Concomitant]
  6. ADDERALL [Concomitant]
  7. LAMICTAL [Concomitant]
  8. ADVIL [Concomitant]
  9. VITAMIN B COMPLEX [Concomitant]

REACTIONS (3)
  - Increased appetite [None]
  - Sexual dysfunction [None]
  - Contusion [None]
